FAERS Safety Report 11623748 (Version 1)
Quarter: 2015Q4

REPORT INFORMATION
  Report Type: Spontaneous
  Country: US (occurrence: US)
  Receive Date: 20151013
  Receipt Date: 20151013
  Transmission Date: 20160304
  Serious: No
  Sender: FDA-Public Use
  Company Number: US-JNJFOC-20150917984

PATIENT
  Age: 62 Year
  Sex: Female
  Weight: 72.58 kg

DRUGS (5)
  1. GELNIQUE [Concomitant]
     Active Substance: OXYBUTYNIN\OXYBUTYNIN CHLORIDE
     Indication: URINARY INCONTINENCE
     Dosage: COUPLE YEARS
     Route: 065
  2. SIMVASTATIN. [Concomitant]
     Active Substance: SIMVASTATIN
     Indication: BLOOD CHOLESTEROL
     Dosage: COUPLE YEARS
     Route: 065
  3. EYE DROPS [Concomitant]
     Active Substance: TETRAHYDROZOLINE HYDROCHLORIDE
     Indication: DRY EYE
     Route: 065
  4. WOMENS ROGAINE [Suspect]
     Active Substance: MINOXIDIL
     Route: 061
  5. WOMENS ROGAINE [Suspect]
     Active Substance: MINOXIDIL
     Indication: ALOPECIA
     Dosage: DROPPER FULL, ONE TIME AT NIGHT
     Route: 061

REACTIONS (3)
  - Hair texture abnormal [Recovering/Resolving]
  - Product quality issue [Unknown]
  - Inappropriate schedule of drug administration [Unknown]
